FAERS Safety Report 15621691 (Version 2)
Quarter: 2018Q4

REPORT INFORMATION
  Report Type: Report from Study
  Country: US (occurrence: US)
  Receive Date: 20181115
  Receipt Date: 20181228
  Transmission Date: 20190205
  Serious: Yes (Hospitalization)
  Sender: FDA-Public Use
  Company Number: US-TEVA-2018-US-973480

PATIENT
  Sex: Male

DRUGS (5)
  1. CLOZAPINE. [Suspect]
     Active Substance: CLOZAPINE
     Route: 065
     Dates: end: 20181105
  2. DIVALPROEX [Concomitant]
     Active Substance: DIVALPROEX SODIUM
  3. LITHIUM CARBONATE. [Concomitant]
     Active Substance: LITHIUM CARBONATE
  4. FLUPHENAZINE [Concomitant]
     Active Substance: FLUPHENAZINE
  5. HALOPERIDOL. [Concomitant]
     Active Substance: HALOPERIDOL

REACTIONS (1)
  - Agranulocytosis [Recovered/Resolved]
